FAERS Safety Report 8311334-2 (Version None)
Quarter: 2012Q2

REPORT INFORMATION
  Report Type: 
  Country: None (occurrence: None)
  Receive Date: 20120425
  Receipt Date: 20120419
  Transmission Date: 20120825
  Serious: Yes (Hospitalization)
  Sender: FDA-Public Use
  Company Number: GB-GLAXOSMITHKLINE-B0796798A

PATIENT
  Sex: Male

DRUGS (12)
  1. PREDNISOLONE [Concomitant]
     Dosage: 5MG TWICE PER DAY
  2. FLUTICASONE PROPIONATE/SALMETEROL [Concomitant]
  3. BETNOVATE [Concomitant]
  4. AMOXICILLIN [Concomitant]
  5. FLUTICASONE FUROATE [Concomitant]
  6. CIPROFLOXACIN [Suspect]
     Indication: PRODUCT USED FOR UNKNOWN INDICATION
     Route: 065
     Dates: start: 20120301
  7. ZYBAN [Suspect]
     Indication: EX-TOBACCO USER
     Dosage: 150MG PER DAY
     Route: 065
     Dates: start: 20120301
  8. VENTOLIN [Concomitant]
  9. SIMVASTATIN [Concomitant]
  10. ZYBAN [Suspect]
     Dosage: 150MG PER DAY
     Route: 065
     Dates: start: 20120316
  11. SOFRADEX EAR DROPS [Concomitant]
  12. DIPROBASE [Concomitant]

REACTIONS (5)
  - CHEST DISCOMFORT [None]
  - DYSPNOEA [None]
  - ABDOMINAL DISTENSION [None]
  - DRY MOUTH [None]
  - NAUSEA [None]
